FAERS Safety Report 9176838 (Version 2)
Quarter: 2013Q2

REPORT INFORMATION
  Report Type: Report from Study
  Country: DE (occurrence: DE)
  Receive Date: 20130321
  Receipt Date: 20130417
  Transmission Date: 20140414
  Serious: Yes (Death, Other)
  Sender: FDA-Public Use
  Company Number: PHHY2013DE026964

PATIENT
  Sex: Male

DRUGS (5)
  1. AFINITOR [Suspect]
     Indication: METASTATIC RENAL CELL CARCINOMA
     Dosage: 10 MG, QD
     Route: 048
     Dates: start: 20130118, end: 20130313
  2. PALLADON [Concomitant]
     Indication: PAIN
     Dosage: 8 MG, BID (ONCE IN MORNING AND OTHER IN EVENING)
     Route: 048
     Dates: start: 201209
  3. BELOC-ZOK [Concomitant]
     Indication: HYPERTENSION
     Dosage: 1 DF, IN EVENING
     Dates: start: 2007
  4. PANTOZOL [Concomitant]
     Dosage: 40 MG, UNK
     Route: 048
     Dates: start: 201209
  5. PREDNISOLONE [Concomitant]
     Dosage: 10 MG, QD
     Route: 048
     Dates: start: 201301

REACTIONS (4)
  - Pneumonia [Fatal]
  - Lung infiltration [Fatal]
  - Blood lactate dehydrogenase increased [Unknown]
  - Aspartate aminotransferase increased [Unknown]
